FAERS Safety Report 10155499 (Version 3)
Quarter: 2014Q2

REPORT INFORMATION
  Report Type: Report from Study
  Country: IT (occurrence: IT)
  Receive Date: 20140506
  Receipt Date: 20140508
  Transmission Date: 20141212
  Serious: Yes (Hospitalization)
  Sender: FDA-Public Use
  Company Number: PHHO2014IT004390

PATIENT
  Sex: 0

DRUGS (6)
  1. LDK378 [Suspect]
     Indication: NON-SMALL CELL LUNG CANCER
     Dosage: 750 MG, QD
     Route: 048
     Dates: start: 20140124, end: 20140322
  2. LDK378 [Suspect]
     Dosage: 750 MG, QD
     Route: 048
     Dates: start: 20140401, end: 20140403
  3. CORIXIL [Concomitant]
     Indication: HYPERTENSION
     Dosage: 25 MG, QD
     Route: 048
  4. PARACODINA [Concomitant]
     Indication: COUGH
     Dosage: 5 G, PRN
  5. NORVASC [Concomitant]
     Dosage: 5 MG, QD
     Route: 048
  6. OMEPRAZOLE [Concomitant]
     Indication: PROPHYLAXIS
     Dosage: 20 MG, QD
     Route: 048
     Dates: start: 20140102

REACTIONS (3)
  - Diarrhoea [Recovered/Resolved]
  - Hyponatraemia [Recovered/Resolved]
  - Pneumocystis jirovecii pneumonia [Recovering/Resolving]
